FAERS Safety Report 6734002-7 (Version None)
Quarter: 2010Q2

REPORT INFORMATION
  Report Type: 
  Country: None (occurrence: None)
  Receive Date: 20100520
  Receipt Date: 20100511
  Transmission Date: 20101027
  Serious: Yes (Death)
  Sender: FDA-Public Use
  Company Number: TW-BAXTER-2010BH011330

PATIENT
  Sex: Female

DRUGS (6)
  1. DIANEAL [Suspect]
     Indication: PERITONEAL DIALYSIS
     Route: 033
     Dates: start: 20050701
  2. DIANEAL [Suspect]
     Route: 033
     Dates: start: 20050701
  3. DIANEAL [Suspect]
     Indication: PERITONEAL DIALYSIS
     Route: 033
     Dates: start: 20050701
  4. DIANEAL [Suspect]
     Route: 033
     Dates: start: 20050701
  5. EXTRANEAL [Suspect]
     Indication: PERITONEAL DIALYSIS
     Route: 033
     Dates: start: 20050701
  6. EXTRANEAL [Suspect]
     Route: 033
     Dates: start: 20050701

REACTIONS (1)
  - CARDIOVASCULAR DISORDER [None]
